FAERS Safety Report 4558888-X (Version None)
Quarter: 2005Q1

REPORT INFORMATION
  Report Type: 
  Country: None (occurrence: None)
  Receive Date: 20050121
  Receipt Date: 20050113
  Transmission Date: 20050727
  Serious: Yes (Other)
  Sender: FDA-Public Use
  Company Number: US-MERCK-0501USA02745

PATIENT
  Age: 10 Year
  Sex: Female

DRUGS (2)
  1. ELSPAR [Suspect]
     Indication: ACUTE LYMPHOCYTIC LEUKAEMIA
     Route: 042
  2. CORTICOSTEROIDS (UNSPECIFIED) [Suspect]
     Route: 065

REACTIONS (2)
  - HYPERLIPIDAEMIA [None]
  - LIPAEMIA RETINALIS [None]
